FAERS Safety Report 9777380 (Version 2)
Quarter: 2013Q4

REPORT INFORMATION
  Report Type: Spontaneous
  Country: FR (occurrence: FR)
  Receive Date: 20131221
  Receipt Date: 20131226
  Transmission Date: 20140711
  Serious: Yes (Hospitalization)
  Sender: FDA-Public Use
  Company Number: PHHY2013FR148893

PATIENT
  Age: 28 Year
  Sex: Male

DRUGS (3)
  1. VOLTARENE [Suspect]
     Indication: PAIN
     Dosage: UNK UKN, UNK
     Dates: start: 20131030, end: 20131102
  2. CLOPIXOL [Suspect]
     Indication: BIPOLAR DISORDER
     Dosage: 2 INJECTIONS MONTHLY
     Route: 065
     Dates: start: 2008, end: 20131111
  3. THERALITE [Suspect]
     Indication: BIPOLAR DISORDER
     Dosage: 2 DF, TID
     Route: 048

REACTIONS (1)
  - Neutropenia [Recovered/Resolved]
